FAERS Safety Report 4738639-6 (Version None)
Quarter: 2005Q3

REPORT INFORMATION
  Report Type: 
  Country: None (occurrence: None)
  Receive Date: 20050803
  Receipt Date: 20050715
  Transmission Date: 20060218
  Serious: Yes (Hospitalization)
  Sender: FDA-Public Use
  Company Number: GBS050717934

PATIENT
  Age: 44 Year
  Sex: Female

DRUGS (4)
  1. OLANZAPINE [Suspect]
     Indication: BIPOLAR DISORDER
     Dosage: 10 MG
     Dates: start: 20040101
  2. VALPROIC ACID [Concomitant]
  3. ASPIRIN [Concomitant]
  4. ZOPICLONE [Concomitant]

REACTIONS (1)
  - CEREBRAL INFARCTION [None]
